FAERS Safety Report 13919447 (Version 1)
Quarter: 2017Q3

REPORT INFORMATION
  Report Type: Spontaneous
  Country: US (occurrence: US)
  Receive Date: 20170830
  Receipt Date: 20170830
  Transmission Date: 20171127
  Serious: No
  Sender: FDA-Public Use
  Company Number: US-BIOVITRUM-2016US1084

PATIENT
  Sex: Male

DRUGS (2)
  1. PREDNOL [Concomitant]
     Active Substance: METHYLPREDNISOLONE
  2. KINERET [Suspect]
     Active Substance: ANAKINRA
     Route: 058
     Dates: start: 201611

REACTIONS (1)
  - Injection site reaction [Unknown]
